FAERS Safety Report 5043150-1 (Version None)
Quarter: 2006Q3

REPORT INFORMATION
  Report Type: 
  Country: None (occurrence: None)
  Receive Date: 20060703
  Receipt Date: 20060703
  Transmission Date: 20061208
  Serious: Yes (Hospitalization)
  Sender: FDA-Public Use
  Company Number: None

PATIENT
  Age: 80 Year
  Sex: Female
  Weight: 94.7 kg

DRUGS (1)
  1. CIPROFLOXACIN [Suspect]
     Indication: DIVERTICULITIS
     Dosage: 500 MG PO
     Route: 048
     Dates: start: 20060501, end: 20060530

REACTIONS (3)
  - BACTERIAL INFECTION [None]
  - HEPATITIS FULMINANT [None]
  - URINARY TRACT INFECTION [None]
